FAERS Safety Report 5447257-6 (Version None)
Quarter: 2007Q3

REPORT INFORMATION
  Report Type: 
  Country: None (occurrence: None)
  Receive Date: 20070905
  Receipt Date: 20070905
  Transmission Date: 20080115
  Serious: Yes (Other)
  Sender: FDA-Public Use
  Company Number: None

PATIENT
  Age: 60 Year
  Sex: Female
  Weight: 65.7716 kg

DRUGS (1)
  1. MODAFINIL [Suspect]
     Indication: FATIGUE
     Dosage: 200MG 1 X A DAY 2ND WEEK IN FEB 2007
     Dates: start: 20070201

REACTIONS (3)
  - ALOPECIA [None]
  - POOR QUALITY DRUG ADMINISTERED [None]
  - PRURITUS [None]
